FAERS Safety Report 9668389 (Version 2)
Quarter: 2013Q4

REPORT INFORMATION
  Report Type: Report from Study
  Country: FR (occurrence: FR)
  Receive Date: 20131104
  Receipt Date: 20131118
  Transmission Date: 20140711
  Serious: Yes (Other)
  Sender: FDA-Public Use
  Company Number: PHHY2013FR123658

PATIENT
  Age: 75 Year
  Sex: Female

DRUGS (7)
  1. ACLASTA/ZOLEDRONATE [Suspect]
     Indication: OSTEOPOROSIS
     Dosage: UNK
     Route: 042
     Dates: start: 20111107
  2. ACLASTA/ZOLEDRONATE [Suspect]
     Dosage: UNK
     Route: 042
     Dates: start: 20121101
  3. STABLON [Concomitant]
     Dosage: UNK UKN, UNK
     Dates: start: 2005, end: 2010
  4. FRACTAL [Concomitant]
     Dosage: UNK UKN, UNK
  5. DOLIPRANE [Concomitant]
     Dosage: UNK UKN, UNK
     Dates: start: 2011
  6. LAMALINE [Concomitant]
     Dosage: UNK UKN, UNK
     Dates: start: 2013
  7. LANOXIN [Concomitant]
     Dosage: UNK UKN, UNK

REACTIONS (1)
  - Spinal fracture [Unknown]
